FAERS Safety Report 8765934 (Version 1)
Quarter: 2012Q4

REPORT INFORMATION
  Report Type: 
  Country: DE (occurrence: DE)
  Receive Date: 20120904
  Receipt Date: 20120904
  Transmission Date: 20130627
  Serious: Yes (Hospitalization)
  Sender: FDA-Public Use
  Company Number: DE-PFIZER INC-2012212737

PATIENT
  Age: 49 Year
  Sex: Female
  Weight: 48 kg

DRUGS (12)
  1. GENOTROPIN MINIQUICK [Suspect]
     Indication: HYPOPITUITARISM
     Dosage: 0.6 mg, 7/wk
     Route: 058
     Dates: start: 20070530
  2. DESMOPRESSIN ACETATE [Concomitant]
     Indication: BLOOD ANTIDIURETIC HORMONE DECREASED
     Dosage: UNK
     Dates: start: 19830115
  3. LEVOTHYROXINE [Concomitant]
     Indication: BLOOD THYROID STIMULATING HORMONE DECREASED
     Dosage: UNK
     Dates: start: 19830115
  4. LEVOTHYROXINE [Concomitant]
     Indication: PRIMARY HYPOTHYROIDISM
  5. KLIOGEST ^NOVO INDUSTRI^ [Concomitant]
     Indication: BLOOD LUTEINISING HORMONE DECREASED
     Dosage: UNK
     Dates: start: 19830115
  6. KLIOGEST ^NOVO INDUSTRI^ [Concomitant]
     Indication: BLOOD FOLLICLE STIMULATING HORMONE DECREASED
  7. KLIOGEST ^NOVO INDUSTRI^ [Concomitant]
     Indication: HYPOGONADISM FEMALE
  8. DEDROGYL [Concomitant]
     Indication: OSTEOPOROSIS
     Dosage: UNK
     Dates: start: 20010701
  9. VIVURAL [Concomitant]
     Indication: OSTEOPOROSIS
     Dosage: UNK
     Dates: start: 20010701
  10. HYDROCORTISONE [Concomitant]
     Indication: BLOOD CORTICOTROPHIN DECREASED
     Dosage: UNK
     Dates: start: 19830115
  11. NEXIUM [Concomitant]
     Indication: GASTROOESOPHAGEAL REFLUX DISEASE
     Dosage: UNK
     Dates: start: 20020701
  12. NEXIUM [Concomitant]
     Indication: PEPTIC ULCER

REACTIONS (1)
  - Diarrhoea [Unknown]
